FAERS Safety Report 13030841 (Version 1)
Quarter: 2016Q4

REPORT INFORMATION
  Report Type: Spontaneous
  Country: US (occurrence: US)
  Receive Date: 20161215
  Receipt Date: 20161215
  Transmission Date: 20170207
  Serious: No
  Sender: FDA-Public Use
  Company Number: US-BAUSCH-BL-2016-019635

PATIENT
  Age: 49 Year
  Sex: Male
  Weight: 79.45 kg

DRUGS (3)
  1. MULTI VIT [Concomitant]
     Indication: PRODUCT USED FOR UNKNOWN INDICATION
  2. APRISO [Suspect]
     Active Substance: MESALAMINE
     Indication: CROHN^S DISEASE
     Route: 048
     Dates: start: 20160812
  3. APRISO [Suspect]
     Active Substance: MESALAMINE
     Dosage: TOOK (4 CAPSULES) AT 8 AM IN THE MORNING AND ACCIDENTALLY TOOK ANOTHER 3 CAPSULES 10 MINUTES LATER
     Route: 048
     Dates: start: 20160812

REACTIONS (3)
  - Off label use [Unknown]
  - No adverse event [Unknown]
  - Extra dose administered [Not Recovered/Not Resolved]

NARRATIVE: CASE EVENT DATE: 20160812
